FAERS Safety Report 5188826-0 (Version None)
Quarter: 2006Q4

REPORT INFORMATION
  Report Type: 
  Country: None (occurrence: None)
  Receive Date: 20061215
  Receipt Date: 20061208
  Transmission Date: 20070319
  Serious: Yes (Hospitalization)
  Sender: FDA-Public Use
  Company Number: 2006SP008149

PATIENT
  Age: 55 Year
  Sex: Female
  Weight: 81.8 kg

DRUGS (2)
  1. TEMODAR [Suspect]
     Indication: GLIOBLASTOMA MULTIFORME
     Dosage: 140 MG; QD; PO
     Route: 048
     Dates: start: 20061026, end: 20061204
  2. RADIATION THERAPY [Concomitant]

REACTIONS (2)
  - DEHYDRATION [None]
  - HAEMOLYSIS [None]
